FAERS Safety Report 6122530-7 (Version None)
Quarter: 2009Q1

REPORT INFORMATION
  Report Type: 
  Country: None (occurrence: None)
  Receive Date: 20090318
  Receipt Date: 20081125
  Transmission Date: 20090719
  Serious: No
  Sender: FDA-Public Use
  Company Number: US-ASTRAZENECA-2008UW26491

PATIENT
  Age: 12 Year
  Sex: Male

DRUGS (2)
  1. SYMBICORT [Suspect]
     Indication: ASTHMA
     Dosage: 80/4.5 UG 2 PUFFS ONCE A DAY
     Route: 055
  2. XOPENEX [Concomitant]

REACTIONS (3)
  - ANXIETY [None]
  - DYSGEUSIA [None]
  - TONGUE DISORDER [None]
